FAERS Safety Report 14366291 (Version 2)
Quarter: 2018Q4

REPORT INFORMATION
  Report Type: Report from Study
  Country: CA (occurrence: CA)
  Receive Date: 20180109
  Receipt Date: 20181203
  Transmission Date: 20190204
  Serious: Yes (Hospitalization, Other)
  Sender: FDA-Public Use
  Company Number: CA-ORION CORPORATION ORION PHARMA-TREX2016-0944

PATIENT
  Age: 45 Year
  Sex: Female

DRUGS (31)
  1. ENBREL [Interacting]
     Active Substance: ETANERCEPT
     Route: 065
     Dates: start: 2015, end: 2016
  2. RANITIDINE. [Concomitant]
     Active Substance: RANITIDINE
     Route: 065
  3. FOLIC ACID. [Concomitant]
     Active Substance: FOLIC ACID
     Route: 065
  4. TYLENOL [Concomitant]
     Active Substance: ACETAMINOPHEN
     Route: 065
  5. IRON [Concomitant]
     Active Substance: IRON
     Route: 065
  6. OMEGA 3-6-9 [Concomitant]
     Active Substance: FISH OIL
     Route: 065
  7. ENBREL [Interacting]
     Active Substance: ETANERCEPT
     Route: 065
     Dates: start: 2015, end: 2015
  8. PREDNISONE. [Concomitant]
     Active Substance: PREDNISONE
     Route: 065
  9. CALCIUM [Concomitant]
     Active Substance: CALCIUM
     Route: 065
  10. VIT B COMPLEX [Concomitant]
     Route: 065
  11. HUMIRA [Concomitant]
     Active Substance: ADALIMUMAB
     Route: 065
  12. MELOXICAM. [Concomitant]
     Active Substance: MELOXICAM
     Route: 065
  13. GAVISCON [Concomitant]
     Active Substance: ALUMINUM HYDROXIDE\MAGNESIUM CARBONATE
     Route: 065
  14. ORENCIA [Concomitant]
     Active Substance: ABATACEPT
     Route: 065
     Dates: start: 201609
  15. ESOMEPRAZOLE MAGNESIUM TRIHYDRATE [Concomitant]
     Active Substance: ESOMEPRAZOLE MAGNESIUM
     Route: 065
  16. METHOTREXATE (TRADE NAME UNKNOWN) [Suspect]
     Active Substance: METHOTREXATE
     Indication: PRODUCT USED FOR UNKNOWN INDICATION
     Route: 065
  17. CRESTOR [Concomitant]
     Active Substance: ROSUVASTATIN CALCIUM
     Route: 065
  18. CETIRIZINE HYDROCHLORIDE. [Concomitant]
     Active Substance: CETIRIZINE HYDROCHLORIDE
     Route: 065
  19. ENBREL [Interacting]
     Active Substance: ETANERCEPT
     Indication: RHEUMATOID ARTHRITIS
     Route: 065
     Dates: start: 20011121, end: 2015
  20. ENBREL [Interacting]
     Active Substance: ETANERCEPT
     Route: 065
  21. NEXIUM [Concomitant]
     Active Substance: ESOMEPRAZOLE MAGNESIUM
     Route: 065
  22. VITAMIN D [Concomitant]
     Active Substance: CHOLECALCIFEROL
     Route: 065
  23. FORTEO [Concomitant]
     Active Substance: TERIPARATIDE
     Route: 065
  24. CODEINE [Concomitant]
     Active Substance: CODEINE
     Route: 065
  25. FOSAVANCE [Concomitant]
     Active Substance: ALENDRONATE SODIUM\CHOLECALCIFEROL
     Route: 065
  26. REACTINE PLUS SINUS [Concomitant]
     Route: 065
  27. CENTRUM [Concomitant]
     Active Substance: VITAMINS
     Route: 065
  28. LAXATIVES OILS [Concomitant]
     Route: 065
  29. ARAVA [Concomitant]
     Active Substance: LEFLUNOMIDE
     Route: 065
  30. ERGOCALCIFEROL. [Concomitant]
     Active Substance: ERGOCALCIFEROL
     Route: 065
  31. ROSUVASTATIN CALCIUM. [Concomitant]
     Active Substance: ROSUVASTATIN CALCIUM
     Route: 065

REACTIONS (24)
  - Hyperkeratosis [Not Recovered/Not Resolved]
  - Muscle tightness [Not Recovered/Not Resolved]
  - Rheumatoid arthritis [Not Recovered/Not Resolved]
  - Pneumonia [Not Recovered/Not Resolved]
  - Oral disorder [Not Recovered/Not Resolved]
  - Femur fracture [Not Recovered/Not Resolved]
  - Dysstasia [Not Recovered/Not Resolved]
  - Osteopenia [Not Recovered/Not Resolved]
  - Drug interaction [Unknown]
  - Bone erosion [Not Recovered/Not Resolved]
  - Malignant melanoma in situ [Not Recovered/Not Resolved]
  - Bursitis [Not Recovered/Not Resolved]
  - Nasal septum perforation [Not Recovered/Not Resolved]
  - Aphthous ulcer [Not Recovered/Not Resolved]
  - Staphylococcal infection [Not Recovered/Not Resolved]
  - Basal cell carcinoma [Not Recovered/Not Resolved]
  - Deafness [Not Recovered/Not Resolved]
  - Hypoaesthesia [Not Recovered/Not Resolved]
  - Arthropathy [Not Recovered/Not Resolved]
  - Muscle disorder [Not Recovered/Not Resolved]
  - Arthralgia [Not Recovered/Not Resolved]
  - Limb discomfort [Not Recovered/Not Resolved]
  - Sinusitis bacterial [Not Recovered/Not Resolved]
  - Foot fracture [Not Recovered/Not Resolved]

NARRATIVE: CASE EVENT DATE: 201201
